FAERS Safety Report 5187989-0 (Version None)
Quarter: 2006Q4

REPORT INFORMATION
  Report Type: 
  Country: None (occurrence: None)
  Receive Date: 20061214
  Receipt Date: 20061201
  Transmission Date: 20070319
  Serious: Yes (Other)
  Sender: FDA-Public Use
  Company Number: 2006RR-04745

PATIENT
  Sex: Male
  Weight: 2.5 kg

DRUGS (1)
  1. ZIDOVUDINE [Suspect]
     Indication: PROPHYLAXIS AGAINST HIV INFECTION
     Dosage: 2 DOSES, ORAL
     Route: 048

REACTIONS (2)
  - DISTAL INTESTINAL OBSTRUCTION SYNDROME [None]
  - DRUG EXPOSURE DURING PREGNANCY [None]
